FAERS Safety Report 7260778-9 (Version None)
Quarter: 2011Q1

REPORT INFORMATION
  Report Type: 
  Country: None (occurrence: None)
  Receive Date: 20110130
  Receipt Date: 20101119
  Transmission Date: 20110831
  Serious: No
  Sender: FDA-Public Use
  Company Number: US-ABBOTT-10P-163-0687164-00

PATIENT
  Age: 38 Year
  Sex: Female

DRUGS (2)
  1. MULTIVITAMIN [Concomitant]
     Indication: PRODUCT USED FOR UNKNOWN INDICATION
  2. HUMIRA [Suspect]
     Indication: CROHN'S DISEASE

REACTIONS (5)
  - DIZZINESS [None]
  - PALLOR [None]
  - ORAL CANDIDIASIS [None]
  - PALPITATIONS [None]
  - MYDRIASIS [None]
